FAERS Safety Report 10563244 (Version 1)
Quarter: 2014Q4

REPORT INFORMATION
  Report Type: Report from Study
  Country: AR (occurrence: AR)
  Receive Date: 20141104
  Receipt Date: 20141104
  Transmission Date: 20150529
  Serious: Yes (Death)
  Sender: FDA-Public Use
  Company Number: AR-SA-2014SA147669

PATIENT
  Age: 60 Year
  Sex: Female

DRUGS (2)
  1. LANTUS SOLOSTAR [Suspect]
     Active Substance: INSULIN GLARGINE
     Indication: DIABETES MELLITUS
     Dosage: DOSE:72 UNIT(S)
     Route: 058
  2. SOLOSTAR [Concomitant]
     Active Substance: DEVICE

REACTIONS (1)
  - Death [Fatal]
